FAERS Safety Report 26175201 (Version 1)
Quarter: 2025Q4

REPORT INFORMATION
  Report Type: Spontaneous
  Country: US (occurrence: None)
  Receive Date: 20251218
  Receipt Date: 20251218
  Transmission Date: 20260117
  Serious: Yes (Death)
  Sender: FDA-CTU
  Company Number: None

PATIENT
  Age: 54 Year
  Sex: Female

DRUGS (14)
  1. OXYCODONE [Suspect]
     Active Substance: OXYCODONE
  2. OXYCODONE 5MG IMMEDIATE REL TABS [Concomitant]
  3. UBRELVY 100MG TABLETS [Concomitant]
  4. FAMOTIDINE 10MG TABLETS [Concomitant]
  5. VITAMIN 03 50,000 IU (CH OLE) CAP [Concomitant]
  6. ASPIRIN 61MG EC LOW DOSE TABLETS [Concomitant]
  7. CLONAZEPAM D.5MG TABLETS [Concomitant]
  8. DICYCLOMINE 10MG CAPSULES [Concomitant]
  9. GABAPENTIN 600MG TABLETS [Concomitant]
  10. LINZESS 145MCG G/1PSULES [Concomitant]
  11. PROPRANOLOL 80MG TABLETS [Concomitant]
  12. SIMVASTATIN [Concomitant]
     Active Substance: SIMVASTATIN
  13. TRAMADOL HYDROCHLORIDE [Concomitant]
     Active Substance: TRAMADOL HYDROCHLORIDE
  14. XYZAL 5MG TABLETS [Concomitant]

REACTIONS (1)
  - Death [None]

NARRATIVE: CASE EVENT DATE: 20251215
